FAERS Safety Report 21795810 (Version 1)
Quarter: 2022Q4

REPORT INFORMATION
  Report Type: Spontaneous
  Country: US (occurrence: US)
  Receive Date: 20221229
  Receipt Date: 20221229
  Transmission Date: 20230113
  Serious: No
  Sender: FDA-Public Use
  Company Number: US-BRISTOL-MYERS SQUIBB COMPANY-2022-160180

PATIENT
  Age: 63 Year
  Sex: Male
  Weight: 68.04 kg

DRUGS (2)
  1. ELIQUIS [Suspect]
     Active Substance: APIXABAN
     Indication: Pulmonary embolism
     Dosage: 10MG A DAY ?FREQ: TWICE A DAY
     Route: 048
     Dates: start: 202003
  2. ELIQUIS [Suspect]
     Active Substance: APIXABAN
     Route: 048
     Dates: start: 202208

REACTIONS (1)
  - Back injury [Unknown]

NARRATIVE: CASE EVENT DATE: 20221226
